FAERS Safety Report 19656463 (Version 1)
Quarter: 2021Q3

REPORT INFORMATION
  Report Type: Spontaneous
  Country: CN (occurrence: CN)
  Receive Date: 20210804
  Receipt Date: 20210804
  Transmission Date: 20211014
  Serious: Yes (Other)
  Sender: FDA-Public Use
  Company Number: CN-ROCHE-2881419

PATIENT
  Age: 69 Year
  Sex: Male

DRUGS (21)
  1. AVASTIN [Suspect]
     Active Substance: BEVACIZUMAB
     Dosage: BEVACIZUMAB + OXALIPLATIN + RALTITREXED
     Route: 065
     Dates: start: 202001
  2. OXALIPLATIN. [Concomitant]
     Active Substance: OXALIPLATIN
     Dosage: FOLFOX
     Dates: start: 201609, end: 201611
  3. AVASTIN [Suspect]
     Active Substance: BEVACIZUMAB
     Dosage: BEVACIZUMAB+ CAPECITABINE
     Route: 065
     Dates: start: 201812
  4. AVASTIN [Suspect]
     Active Substance: BEVACIZUMAB
     Dosage: BEVACIZUMAB + RALTITREXED
     Route: 065
     Dates: start: 202003, end: 202007
  5. FLUOROURACIL. [Suspect]
     Active Substance: FLUOROURACIL
     Dosage: BEVACIZUMAB + FOLFIRI
     Route: 065
     Dates: start: 201808, end: 201812
  6. RALTITREXED [Concomitant]
     Active Substance: RALTITREXED
     Dosage: BEVACIZUMAB + IRINOTECAN + RALTITREXED
     Dates: start: 202002
  7. XELODA [Suspect]
     Active Substance: CAPECITABINE
     Dosage: CAPECITABINE, 1.5 G IN THE MORNING AND 2 G IN THE EVENING
     Route: 065
     Dates: start: 201704, end: 201708
  8. AVASTIN [Suspect]
     Active Substance: BEVACIZUMAB
     Dosage: BEVACIZUMAB + RALTITREXED+IRINOTECAN
     Route: 065
     Dates: start: 202002
  9. AVASTIN [Suspect]
     Active Substance: BEVACIZUMAB
     Dosage: BEVACIZUMAB + S?1
     Route: 065
     Dates: start: 202007
  10. CALCIUM FOLINATE [Suspect]
     Active Substance: LEUCOVORIN CALCIUM
     Indication: RECTAL CANCER
     Dosage: FOLFOX
     Route: 065
     Dates: start: 201609, end: 201611
  11. RALTITREXED [Concomitant]
     Active Substance: RALTITREXED
     Dosage: BEVACIZUMAB + OXALIPLATIN + RALTITREXED
     Dates: start: 202001
  12. XELODA [Suspect]
     Active Substance: CAPECITABINE
     Dosage: BEVACIZUMAB+ CAPECITABINE
     Route: 065
     Dates: start: 201812
  13. CALCIUM FOLINATE [Suspect]
     Active Substance: LEUCOVORIN CALCIUM
     Dosage: BEVACIZUMAB + FOLFIRI
     Route: 065
     Dates: start: 201808, end: 201812
  14. FLUOROURACIL. [Suspect]
     Active Substance: FLUOROURACIL
     Indication: RECTAL CANCER
     Dosage: FOLFOX4
     Route: 065
     Dates: start: 201609, end: 201611
  15. XELODA [Suspect]
     Active Substance: CAPECITABINE
     Indication: RECTAL CANCER
     Route: 048
     Dates: start: 201612, end: 201703
  16. AVASTIN [Suspect]
     Active Substance: BEVACIZUMAB
     Indication: RECTAL CANCER
     Dosage: BEVACIZUMAB + FOLFIRI
     Route: 065
     Dates: start: 201808, end: 201812
  17. XELODA [Suspect]
     Active Substance: CAPECITABINE
     Dosage: CAPECITABINE
     Route: 065
     Dates: end: 201912
  18. IRINOTECAN [Suspect]
     Active Substance: IRINOTECAN
     Dosage: BEVACIZUMAB + IRINOTECAN + RALTITREXED
     Route: 065
     Dates: start: 202002
  19. IRINOTECAN [Suspect]
     Active Substance: IRINOTECAN
     Indication: RECTAL CANCER
     Dosage: BEVACIZUMAB + FOLFIRI
     Route: 065
     Dates: start: 201808, end: 201812
  20. OXALIPLATIN. [Concomitant]
     Active Substance: OXALIPLATIN
     Dosage: BEVACIZUMAB + OXALIPLATIN + RALTITREXED
     Dates: start: 202001
  21. RALTITREXED [Concomitant]
     Active Substance: RALTITREXED
     Dosage: BEVACIZUMAB + RALTITREXED
     Dates: start: 202003, end: 202007

REACTIONS (4)
  - Myelosuppression [Unknown]
  - Diarrhoea [Unknown]
  - Infection [Unknown]
  - Deep vein thrombosis [Unknown]
